FAERS Safety Report 7439425-9 (Version None)
Quarter: 2011Q2

REPORT INFORMATION
  Report Type: 
  Country: None (occurrence: None)
  Receive Date: 20110427
  Receipt Date: 20110419
  Transmission Date: 20111010
  Serious: Yes (Other)
  Sender: FDA-Public Use
  Company Number: GB-ASTELLAS-2011EU001441

PATIENT
  Sex: Female

DRUGS (1)
  1. VESICARE [Suspect]
     Indication: URINARY INCONTINENCE
     Dosage: 5 MG, UID/QD
     Route: 048
     Dates: start: 20110217

REACTIONS (8)
  - CONSTIPATION [None]
  - ERYTHEMA NODOSUM [None]
  - FATIGUE [None]
  - DYSPNOEA [None]
  - DRY MOUTH [None]
  - HILAR LYMPHADENOPATHY [None]
  - DYSPEPSIA [None]
  - OEDEMA [None]
